FAERS Safety Report 4683551-4 (Version None)
Quarter: 2005Q2

REPORT INFORMATION
  Report Type: 
  Country: None (occurrence: None)
  Receive Date: 20050606
  Receipt Date: 20050606
  Transmission Date: 20051028
  Serious: No
  Sender: FDA-Public Use
  Company Number: None

PATIENT
  Age: 44 Year
  Sex: Male
  Weight: 85.2762 kg

DRUGS (2)
  1. ZETIA [Suspect]
     Indication: DRUG INTOLERANCE
     Dates: start: 20050207, end: 20050520
  2. ZETIA [Suspect]
     Indication: HYPERCHOLESTEROLAEMIA
     Dates: start: 20050207, end: 20050520

REACTIONS (2)
  - BLOOD CREATINE PHOSPHOKINASE INCREASED [None]
  - MYALGIA [None]
